FAERS Safety Report 8361433-4 (Version None)
Quarter: 2012Q2

REPORT INFORMATION
  Report Type: 
  Country: None (occurrence: None)
  Receive Date: 20120514
  Receipt Date: 20120427
  Transmission Date: 20120825
  Serious: Yes (Hospitalization)
  Sender: FDA-Public Use
  Company Number: 2012RR-56127

PATIENT
  Age: 83 Year
  Sex: Female

DRUGS (2)
  1. LOSARTAN POTASSIUM [Suspect]
     Indication: HYPERTENSION
  2. HYDROCHLOROTHIAZIDE [Suspect]
     Indication: HYPERTENSION
     Dosage: ORAL
     Route: 048

REACTIONS (12)
  - HYPOTENSION [None]
  - WHITE BLOOD CELL COUNT DECREASED [None]
  - BLOOD BICARBONATE DECREASED [None]
  - ACUTE PULMONARY OEDEMA [None]
  - ABDOMINAL PAIN [None]
  - RESPIRATORY FAILURE [None]
  - BLOOD PH DECREASED [None]
  - BLOOD CREATINE PHOSPHOKINASE MB INCREASED [None]
  - BLOOD LACTIC ACID INCREASED [None]
  - NAUSEA [None]
  - SINUS TACHYCARDIA [None]
  - ELECTROCARDIOGRAM ST SEGMENT DEPRESSION [None]
